FAERS Safety Report 7271685-X (Version None)
Quarter: 2011Q1

REPORT INFORMATION
  Report Type: 
  Country: None (occurrence: None)
  Receive Date: 20110203
  Receipt Date: 20110126
  Transmission Date: 20110831
  Serious: Yes (Other)
  Sender: FDA-Public Use
  Company Number: GB-JNJFOC-20101102638

PATIENT
  Sex: Female
  Weight: 81 kg

DRUGS (1)
  1. VERMOX [Suspect]
     Indication: ENTEROBIASIS
     Route: 048

REACTIONS (8)
  - DRUG EXPOSURE DURING PREGNANCY [None]
  - EPILEPSY [None]
  - RESPIRATORY DISORDER [None]
  - FEELING ABNORMAL [None]
  - PRURITUS [None]
  - CONFUSIONAL STATE [None]
  - DISORIENTATION [None]
  - MYALGIA [None]
